FAERS Safety Report 5515591-7 (Version None)
Quarter: 2007Q4

REPORT INFORMATION
  Report Type: 
  Country: None (occurrence: None)
  Receive Date: 20071113
  Receipt Date: 20070619
  Transmission Date: 20080405
  Serious: No
  Sender: FDA-Public Use
  Company Number: A0658239A

PATIENT
  Age: 86 Year
  Sex: Female

DRUGS (5)
  1. COREG [Suspect]
     Indication: HYPERTENSION
     Dosage: 1TAB TWICE PER DAY
     Route: 048
  2. ZIAC [Concomitant]
  3. NEXIUM [Concomitant]
  4. DETROL [Concomitant]
  5. COUMADIN [Concomitant]

REACTIONS (2)
  - FATIGUE [None]
  - SLEEP DISORDER [None]
